FAERS Safety Report 6757140-1 (Version None)
Quarter: 2010Q2

REPORT INFORMATION
  Report Type: 
  Country: None (occurrence: None)
  Receive Date: 20100605
  Receipt Date: 20100525
  Transmission Date: 20101027
  Serious: Yes (Other)
  Sender: FDA-Public Use
  Company Number: GR-ROCHE-705338

PATIENT
  Age: 58 Year
  Sex: Female

DRUGS (4)
  1. BONIVA [Suspect]
     Indication: OSTEOPOROSIS
     Route: 048
     Dates: start: 20080101
  2. IDEOS [Concomitant]
     Indication: OSTEOPOROSIS
     Route: 048
  3. ONE-ALPHA [Concomitant]
     Indication: OSTEOPOROSIS
     Route: 048
  4. EFFEXOR [Concomitant]
     Indication: DEPRESSION
     Route: 048

REACTIONS (1)
  - UREA URINE INCREASED [None]
